FAERS Safety Report 12115892 (Version 3)
Quarter: 2016Q1

REPORT INFORMATION
  Report Type: Spontaneous
  Country: US (occurrence: US)
  Receive Date: 20160225
  Receipt Date: 20160330
  Transmission Date: 20160526
  Serious: No
  Sender: FDA-Public Use
  Company Number: US-GLAXOSMITHKLINE-US2016024758

PATIENT
  Age: 38 Year
  Sex: Male

DRUGS (4)
  1. FENOFIBRATE. [Concomitant]
     Active Substance: FENOFIBRATE
  2. SIMVASTATIN. [Concomitant]
     Active Substance: SIMVASTATIN
  3. LISINOPRIL. [Concomitant]
     Active Substance: LISINOPRIL
  4. VENTOLIN HFA [Suspect]
     Active Substance: ALBUTEROL SULFATE
     Indication: DYSPNOEA
     Dosage: 2 PUFF(S), PRN
     Route: 055

REACTIONS (2)
  - Dyspnoea [Recovering/Resolving]
  - Device use error [Recovered/Resolved]

NARRATIVE: CASE EVENT DATE: 20160218
